FAERS Safety Report 6353827-3 (Version None)
Quarter: 2009Q3

REPORT INFORMATION
  Report Type: 
  Country: None (occurrence: None)
  Receive Date: 20090912
  Receipt Date: 20090828
  Transmission Date: 20100115
  Serious: Yes (Death)
  Sender: FDA-Public Use
  Company Number: JP-ROCHE-654660

PATIENT
  Sex: Male

DRUGS (1)
  1. TAMIFLU [Suspect]
     Indication: INFLUENZA
     Dosage: STOP DATE: AUG 2009.
     Route: 048
     Dates: start: 20090826

REACTIONS (2)
  - PNEUMONIA [None]
  - RESPIRATORY FAILURE [None]
